FAERS Safety Report 5795560-2 (Version None)
Quarter: 2008Q2

REPORT INFORMATION
  Report Type: 
  Country: None (occurrence: None)
  Receive Date: 20080630
  Receipt Date: 20080626
  Transmission Date: 20081010
  Serious: Yes (Life-Threatening)
  Sender: FDA-Public Use
  Company Number: PHBS2007IT19546

PATIENT
  Sex: Female

DRUGS (2)
  1. FEMARA [Suspect]
     Indication: BREAST CANCER
     Dosage: 2.5 MG/DAILY
     Route: 048
     Dates: start: 20070328
  2. PROCAPTAN [Concomitant]
     Dosage: 1 POSOLOGIC UNIT/D
     Route: 048

REACTIONS (3)
  - ASPHYXIA [None]
  - CONVULSION [None]
  - MEMORY IMPAIRMENT [None]
